FAERS Safety Report 9928877 (Version 2)
Quarter: 2014Q1

REPORT INFORMATION
  Report Type: Spontaneous
  Country: US (occurrence: US)
  Receive Date: 20140227
  Receipt Date: 20140311
  Transmission Date: 20141002
  Serious: No
  Sender: FDA-Public Use
  Company Number: US-BAYER-2014-030676

PATIENT
  Sex: 0

DRUGS (1)
  1. GADAVIST [Suspect]
     Dosage: UNK UNK, ONCE

REACTIONS (1)
  - Nausea [None]
